FAERS Safety Report 5827349-X (Version None)
Quarter: 2008Q3

REPORT INFORMATION
  Report Type: 
  Country: None (occurrence: None)
  Receive Date: 20080730
  Receipt Date: 20080724
  Transmission Date: 20090109
  Serious: Yes (Life-Threatening, Hospitalization)
  Sender: FDA-Public Use
  Company Number: GB-BRISTOL-MYERS SQUIBB COMPANY-13905864

PATIENT
  Age: 69 Year

DRUGS (12)
  1. CETUXIMAB [Suspect]
     Indication: COLON CANCER
     Dosage: INITIATED ON 30MAY-29AUG07;INTERRUPTED;RESTARTED ON 26SEP07-ONGOING.
     Route: 042
     Dates: start: 20070530
  2. OXALIPLATIN [Suspect]
     Indication: COLON CANCER
     Dosage: INITIATED ON 30MAY-UKNWN;INTERRUPTED;RESTARTED ON 26SEP07-ONGOING.
     Route: 042
     Dates: start: 20070530
  3. FLUOROURACIL [Suspect]
     Indication: COLON CANCER
     Dosage: INITIATED ON 30MAY-UNKWN;INTERRUPTED;RESTARTED ON 26SEP07-ONGOING.
     Route: 042
     Dates: start: 20070530
  4. FOLINIC ACID [Suspect]
     Indication: COLON CANCER
     Dosage: INITIATED ON 30MAY-UNKWN;INTERRUPTED;RESTARTED ON 26SEP07-ONGOING.
     Route: 042
     Dates: start: 20070530
  5. WARFARIN SODIUM [Concomitant]
     Indication: PROPHYLAXIS
     Dates: start: 20070604
  6. AMLODIPINE [Concomitant]
     Indication: HYPERTENSION
     Dates: start: 19970101
  7. ATORVASTATIN [Concomitant]
     Indication: HYPERTENSION
     Dates: start: 19970101
  8. ONDANSETRON [Concomitant]
     Indication: VOMITING
     Dates: start: 20070530
  9. RANITIDINE HCL [Concomitant]
     Dates: start: 20070530
  10. ACETAMINOPHEN [Concomitant]
     Dates: start: 20070530
  11. CHLORPHENIRAMINE MALEATE [Concomitant]
     Dates: start: 20070530
  12. DEXAMETHASONE [Concomitant]
     Dates: start: 20070530

REACTIONS (2)
  - CHILLS [None]
  - OESOPHAGITIS [None]
